FAERS Safety Report 10223603 (Version 2)
Quarter: 2014Q2

REPORT INFORMATION
  Report Type: Spontaneous
  Country: US (occurrence: US)
  Receive Date: 20140609
  Receipt Date: 20140609
  Transmission Date: 20141212
  Serious: No
  Sender: FDA-Public Use
  Company Number: US-DRREDDYS-USA/USA/13/0035753

PATIENT
  Age: 88 Year
  Sex: Female

DRUGS (6)
  1. FEXOFENADINE HCL  OTC [Suspect]
     Indication: TINNITUS
     Route: 048
     Dates: start: 20131121, end: 20131121
  2. FEXOFENADINE HCL  OTC [Suspect]
     Indication: RHINORRHOEA
  3. FEXOFENADINE HCL  OTC [Suspect]
     Indication: NASAL CONGESTION
  4. BABY ASPIRIN [Concomitant]
     Indication: PRODUCT USED FOR UNKNOWN INDICATION
     Route: 065
  5. NORVASC [Concomitant]
     Indication: HYPERTENSION
     Route: 065
  6. OMEPRAZOLE [Concomitant]
     Indication: GASTROOESOPHAGEAL REFLUX DISEASE
     Route: 065

REACTIONS (3)
  - Choking [Recovered/Resolved]
  - Feeling abnormal [Unknown]
  - Oropharyngeal pain [Not Recovered/Not Resolved]
